FAERS Safety Report 4319390-3 (Version None)
Quarter: 2004Q1

REPORT INFORMATION
  Report Type: 
  Country: None (occurrence: None)
  Receive Date: 20040316
  Receipt Date: 20040224
  Transmission Date: 20041129
  Serious: Yes (Other)
  Sender: FDA-Public Use
  Company Number: B0325168A

PATIENT
  Age: 71 Year
  Sex: Male

DRUGS (2)
  1. AVANDIA [Suspect]
     Indication: DIABETES MELLITUS NON-INSULIN-DEPENDENT
     Dates: start: 20020401, end: 20020701
  2. GLUCOVANCE [Concomitant]

REACTIONS (3)
  - DIABETIC RETINAL OEDEMA [None]
  - FLUID RETENTION [None]
  - OEDEMA PERIPHERAL [None]
